FAERS Safety Report 5972651-4 (Version None)
Quarter: 2008Q4

REPORT INFORMATION
  Report Type: 
  Country: None (occurrence: None)
  Receive Date: 20081201
  Receipt Date: 20081118
  Transmission Date: 20090506
  Serious: Yes (Death)
  Sender: FDA-Public Use
  Company Number: JP-NOVOPROD-279090

PATIENT
  Age: 39 Year
  Sex: Male
  Weight: 60 kg

DRUGS (4)
  1. NOVOSEVEN [Suspect]
     Indication: HAEMORRHAGE
     Dosage: 4.8 MG X 2
     Route: 042
     Dates: start: 20080820, end: 20080820
  2. FRESH FROZEN PLASMA [Concomitant]
     Dosage: UNKNOWN
     Dates: start: 20080819, end: 20080821
  3. RED BLOOD CELLS [Concomitant]
     Dosage: UNKNOWN
     Dates: start: 20080819, end: 20080821
  4. PLATELETS, CONCENTRATED [Concomitant]
     Dosage: UNKNOWN
     Dates: start: 20080819, end: 20080821

REACTIONS (2)
  - ESCHERICHIA SEPSIS [None]
  - SHOCK HAEMORRHAGIC [None]
